FAERS Safety Report 6589606-1 (Version None)
Quarter: 2010Q1

REPORT INFORMATION
  Report Type: 
  Country: None (occurrence: None)
  Receive Date: 20100212
  Receipt Date: 20100205
  Transmission Date: 20100710
  Serious: Yes (Death)
  Sender: FDA-Public Use
  Company Number: 2010US000116

PATIENT
  Sex: Male

DRUGS (1)
  1. PROGRAF [Suspect]
     Indication: ORGAN TRANSPLANT

REACTIONS (3)
  - MULTIPLE MYELOMA [None]
  - NEOPLASM MALIGNANT [None]
  - PNEUMONIA [None]
